FAERS Safety Report 9636372 (Version 2)
Quarter: 2013Q4

REPORT INFORMATION
  Report Type: Spontaneous
  Country: US (occurrence: US)
  Receive Date: 20131021
  Receipt Date: 20131202
  Transmission Date: 20140711
  Serious: Yes (Hospitalization)
  Sender: FDA-Public Use
  Company Number: US-PFIZER INC-2013298130

PATIENT
  Age: 43 Year
  Sex: Female
  Weight: 58.96 kg

DRUGS (4)
  1. LYRICA [Suspect]
     Indication: FIBROMYALGIA
     Dosage: 300 MG, 2X/DAY
     Route: 048
  2. LYRICA [Suspect]
     Indication: CONVULSION
  3. LYRICA [Suspect]
     Indication: NEURALGIA
  4. LISINOPRIL [Concomitant]
     Indication: HYPERTENSION
     Dosage: UNK

REACTIONS (5)
  - Convulsion [Recovered/Resolved]
  - Fall [Unknown]
  - Periorbital contusion [Recovered/Resolved]
  - Headache [Recovered/Resolved]
  - Therapeutic response unexpected [Unknown]
